FAERS Safety Report 7471899-X (Version None)
Quarter: 2011Q2

REPORT INFORMATION
  Report Type: 
  Country: None (occurrence: None)
  Receive Date: 20110511
  Receipt Date: 20100707
  Transmission Date: 20111010
  Serious: No
  Sender: FDA-Public Use
  Company Number: A0868972A

PATIENT
  Age: 68 Year
  Sex: Female
  Weight: 65.9 kg

DRUGS (13)
  1. CALCIUM + VITAMIN D [Concomitant]
  2. TYKERB [Suspect]
     Indication: BREAST CANCER
     Dosage: 5TAB PER DAY
     Route: 048
     Dates: start: 20100626, end: 20100808
  3. MAGNESIUM OXIDE [Concomitant]
     Dosage: 400MG PER DAY
  4. VITAMIN B6 [Concomitant]
     Dosage: 100MG TWICE PER DAY
  5. PRILOSEC [Concomitant]
     Dosage: 20MG PER DAY
  6. MULTI-VITAMIN [Concomitant]
     Dosage: 1TAB PER DAY
  7. XELODA [Concomitant]
     Dosage: 2000MG TWICE PER DAY
     Route: 048
     Dates: start: 20100625, end: 20100701
  8. VITAMIN B-12 [Concomitant]
     Dosage: 500MCG PER DAY
  9. VITAMIN D [Concomitant]
     Dosage: 2000IU PER DAY
  10. THYROID MEDICATION [Concomitant]
     Indication: HYPOTHYROIDISM
     Route: 048
  11. TYLENOL PM [Suspect]
     Dosage: 2TAB AT NIGHT
  12. ZOFRAN [Concomitant]
     Dosage: 8MG AS REQUIRED
  13. TUMS [Concomitant]

REACTIONS (2)
  - NAUSEA [None]
  - TREATMENT FAILURE [None]
